FAERS Safety Report 16678804 (Version 1)
Quarter: 2019Q3

REPORT INFORMATION
  Report Type: Spontaneous
  Country: US (occurrence: US)
  Receive Date: 20190621
  Receipt Date: 20190621
  Transmission Date: 20191004
  Serious: Yes (Hospitalization, Other)
  Sender: FDA-Public Use
  Company Number: None

PATIENT
  Age: 59 Year
  Sex: Female

DRUGS (1)
  1. LETAIRIS [Suspect]
     Active Substance: AMBRISENTAN
     Indication: SYSTEMIC LUPUS ERYTHEMATOSUS
     Route: 048
     Dates: start: 201702

REACTIONS (5)
  - Cardiac arrest [None]
  - Abdominal wall haematoma [None]
  - Respiratory failure [None]
  - Cardiogenic shock [None]
  - Acute myocardial infarction [None]

NARRATIVE: CASE EVENT DATE: 20190605
